FAERS Safety Report 9672060 (Version 1)
Quarter: 2013Q4

REPORT INFORMATION
  Report Type: Spontaneous
  Country: US (occurrence: US)
  Receive Date: 20131106
  Receipt Date: 20131106
  Transmission Date: 20140711
  Serious: Yes (Other)
  Sender: FDA-Public Use
  Company Number: US-ASTRAZENECA-2013SE79943

PATIENT
  Age: 59 Year
  Sex: Male

DRUGS (4)
  1. BRILINTA [Suspect]
     Indication: MYOCARDIAL INFARCTION
     Route: 048
     Dates: start: 20131028, end: 20131029
  2. ASPIRIN [Concomitant]
     Indication: PROPHYLAXIS
     Route: 048
  3. LOSARTIN [Concomitant]
     Indication: HYPERTENSION
     Route: 048
  4. PROVASTATIN [Concomitant]
     Route: 048

REACTIONS (1)
  - Thrombosis in device [Not Recovered/Not Resolved]
